FAERS Safety Report 9817751 (Version 1)
Quarter: 2014Q1

REPORT INFORMATION
  Report Type: Spontaneous
  Country: US (occurrence: None)
  Receive Date: 20140110
  Receipt Date: 20140110
  Transmission Date: 20141002
  Serious: Yes (Other)
  Sender: FDA-Public Use
  Company Number: None

PATIENT
  Age: 56 Year
  Sex: Male

DRUGS (2)
  1. TRELSTAR [Suspect]
     Indication: PROSTATE CANCER
     Dosage: 11.25 MG Q 12 WEEKS INTRAMUSCULAR
     Route: 030
  2. FLOMAX [Concomitant]

REACTIONS (6)
  - Rash erythematous [None]
  - Rash [None]
  - Rash [None]
  - Rash [None]
  - Drug effect decreased [None]
  - Withdrawal syndrome [None]
